FAERS Safety Report 17212600 (Version 1)
Quarter: 2019Q4

REPORT INFORMATION
  Report Type: Spontaneous
  Country: CA (occurrence: CA)
  Receive Date: 20191230
  Receipt Date: 20191230
  Transmission Date: 20200122
  Serious: Yes (Life-Threatening, Hospitalization, Disabling, Other)
  Sender: FDA-Public Use
  Company Number: CA-GLAXOSMITHKLINE-CA2019AMR236371

PATIENT
  Age: 12 Day
  Sex: Male
  Weight: 3 kg

DRUGS (4)
  1. LAMICTAL [Suspect]
     Active Substance: LAMOTRIGINE
     Indication: BIPOLAR DISORDER
     Dosage: 15.0 MG 1 EVERY 1 DAYS
     Route: 064
  2. ABILIFY [Suspect]
     Active Substance: ARIPIPRAZOLE
     Indication: BIPOLAR DISORDER
     Dosage: 15 MG, QD 1 EVERY 1 DAYS
     Route: 064
  3. SERTRALINE HYDROCHLORIDE. [Suspect]
     Active Substance: SERTRALINE HYDROCHLORIDE
     Indication: BIPOLAR DISORDER
     Dosage: 100 MG, QD 1 EVERY 1 DAYS
     Route: 064
  4. SYNTHROID [Concomitant]
     Active Substance: LEVOTHYROXINE SODIUM
     Indication: PRODUCT USED FOR UNKNOWN INDICATION
     Dosage: UNK

REACTIONS (10)
  - Heart rate increased [Unknown]
  - Thrombosis [Unknown]
  - Crystal urine present [Unknown]
  - Extremity necrosis [Unknown]
  - Somnolence [Unknown]
  - Dehydration [Unknown]
  - Hypernatraemia [Unknown]
  - Weight decreased [Unknown]
  - Skin graft [Unknown]
  - Foot amputation [Unknown]
